FAERS Safety Report 8122255-2 (Version None)
Quarter: 2012Q1

REPORT INFORMATION
  Report Type: 
  Country: None (occurrence: None)
  Receive Date: 20120208
  Receipt Date: 20120126
  Transmission Date: 20120608
  Serious: Yes (Other)
  Sender: FDA-Public Use
  Company Number: DE-ROCHE-1034976

PATIENT
  Age: 70 Year
  Sex: Male

DRUGS (2)
  1. BONIVA [Suspect]
     Indication: OSTEOPOROSIS
     Route: 042
  2. CALCIUM [Concomitant]

REACTIONS (8)
  - DIZZINESS [None]
  - PERIPHERAL COLDNESS [None]
  - MUSCULOSKELETAL STIFFNESS [None]
  - FLATULENCE [None]
  - VISUAL IMPAIRMENT [None]
  - LOSS OF CONSCIOUSNESS [None]
  - CHILLS [None]
  - SLEEP DISORDER [None]
